FAERS Safety Report 20728142 (Version 1)
Quarter: 2022Q2

REPORT INFORMATION
  Report Type: Spontaneous
  Country: US (occurrence: US)
  Receive Date: 20220420
  Receipt Date: 20220420
  Transmission Date: 20220721
  Serious: No
  Sender: FDA-Public Use
  Company Number: US-TEVA-2022-US-2022263

PATIENT
  Age: 46 Year
  Sex: Male

DRUGS (1)
  1. SILDENAFIL [Suspect]
     Active Substance: SILDENAFIL
     Route: 065

REACTIONS (3)
  - Headache [Unknown]
  - Dizziness [Unknown]
  - Drug effect less than expected [Unknown]
